FAERS Safety Report 7474669-1 (Version None)
Quarter: 2011Q2

REPORT INFORMATION
  Report Type: 
  Country: None (occurrence: None)
  Receive Date: 20110505
  Receipt Date: 20110419
  Transmission Date: 20111010
  Serious: Yes (Other)
  Sender: FDA-Public Use
  Company Number: 032019

PATIENT
  Sex: Female

DRUGS (5)
  1. KEPPRA [Suspect]
     Dosage: (UPTITRATION TO UPTO 500MG/DAY) ; (300 MG)
     Dates: start: 20010101
  2. PREGABALIN [Suspect]
     Dosage: (AT DOSES OF UP TO 600 MG/DAY) ; (DOSE REDUCED)
     Dates: start: 20050101
  3. CARBAMAZEPINE [Concomitant]
  4. GABAPENTIN [Suspect]
     Dosage: (AT DOSES OF UPTO 4800 MG/DAY) ; (DOSE REDUCED)
     Dates: start: 20000101
  5. LACOSAMIDE [Suspect]
     Dosage: (UPTITRATION UP TO 600MG/DAY) ; (500 MG)
     Dates: start: 20090401

REACTIONS (5)
  - HIPPOCAMPAL SCLEROSIS [None]
  - OFF LABEL USE [None]
  - PETIT MAL EPILEPSY [None]
  - GRAND MAL CONVULSION [None]
  - COMPLEX PARTIAL SEIZURES [None]
